FAERS Safety Report 21044285 (Version 1)
Quarter: 2022Q3

REPORT INFORMATION
  Report Type: Other
  Country: US (occurrence: US)
  Receive Date: 20220705
  Receipt Date: 20220705
  Transmission Date: 20221027
  Serious: No
  Sender: FDA-Public Use
  Company Number: US-Covis Pharma GmbH-2022COV01986

PATIENT
  Age: 27 Year
  Sex: Female
  Weight: 135.75 kg

DRUGS (1)
  1. MAKENA [Suspect]
     Active Substance: HYDROXYPROGESTERONE CAPROATE
     Indication: Premature delivery
     Route: 058

REACTIONS (2)
  - Pain [Not Recovered/Not Resolved]
  - Cervical incompetence [Unknown]

NARRATIVE: CASE EVENT DATE: 20220622
